FAERS Safety Report 7346161-6 (Version None)
Quarter: 2011Q1

REPORT INFORMATION
  Report Type: 
  Country: None (occurrence: None)
  Receive Date: 20110311
  Receipt Date: 20110225
  Transmission Date: 20110831
  Serious: Yes (Hospitalization, Congenital Anomaly, Other)
  Sender: FDA-Public Use
  Company Number: PHHY2011DE17233

PATIENT
  Sex: Female

DRUGS (2)
  1. VALPROIC ACID [Suspect]
     Indication: EPILEPSY
     Dosage: 3600 MG, QD
  2. CARBAMAZEPINE [Suspect]
     Indication: EPILEPSY
     Dosage: 450 MG, DAILY
     Route: 048

REACTIONS (14)
  - ARNOLD-CHIARI MALFORMATION [None]
  - LUNG DISORDER [None]
  - DEAFNESS CONGENITAL [None]
  - HYPOTONIA [None]
  - NEONATAL RESPIRATORY DISTRESS SYNDROME [None]
  - MENINGOMYELOCELE [None]
  - NEONATAL HYPOTENSION [None]
  - DRUG EXPOSURE DURING PREGNANCY [None]
  - PULMONARY VALVE STENOSIS CONGENITAL [None]
  - ATRIAL SEPTAL DEFECT [None]
  - HYPOGLYCAEMIA NEONATAL [None]
  - MICROCEPHALY [None]
  - ANAEMIA NEONATAL [None]
  - PREMATURE BABY [None]
